FAERS Safety Report 8583795-5 (Version None)
Quarter: 2012Q3

REPORT INFORMATION
  Report Type: 
  Country: None (occurrence: None)
  Receive Date: 20120810
  Receipt Date: 20120730
  Transmission Date: 20120928
  Serious: Yes (Other)
  Sender: FDA-Public Use
  Company Number: JP-009507513-1207JPN012689

PATIENT

DRUGS (11)
  1. [THERAPY UNSPECIFIED] [Concomitant]
     Route: 058
  2. REBETOL [Suspect]
     Route: 048
     Dates: start: 20120703
  3. URSO 250 [Concomitant]
     Indication: HEPATITIS C
     Route: 048
  4. SHAKUYAKU-KANZO-TO [Concomitant]
     Dosage: 2.5G/DAY,AS NEEDED
     Route: 048
  5. PEG-INTRON [Suspect]
     Dosage: 1.1MCG/KG/WEEK
     Route: 058
     Dates: start: 20120529, end: 20120625
  6. TELAVIC [Suspect]
     Indication: HEPATITIS C
     Route: 048
     Dates: start: 20120514
  7. PEG-INTRON [Suspect]
     Dosage: 1.5MCG/KG/WEEK
     Route: 058
     Dates: start: 20120626
  8. MIGLITOL [Concomitant]
     Route: 048
     Dates: end: 20120515
  9. PEG-INTRON [Suspect]
     Indication: HEPATITIS C
     Dosage: 1.5MCG/KG/WEEK
     Route: 058
     Dates: start: 20120514, end: 20120529
  10. REBETOL [Suspect]
     Indication: HEPATITIS C
     Route: 048
     Dates: start: 20120514, end: 20120702
  11. [THERAPY UNSPECIFIED] [Concomitant]
     Route: 058

REACTIONS (1)
  - NEUTROPENIA [None]
